FAERS Safety Report 8472500-9 (Version None)
Quarter: 2012Q2

REPORT INFORMATION
  Report Type: 
  Country: None (occurrence: None)
  Receive Date: 20120627
  Receipt Date: 20120209
  Transmission Date: 20120825
  Serious: No
  Sender: FDA-Public Use
  Company Number: US-AMGEN-USASP2012009128

PATIENT
  Age: 85 Year
  Sex: Female

DRUGS (2)
  1. PROCRIT [Suspect]
     Indication: MYELODYSPLASTIC SYNDROME
     Dosage: 60000 IU, UNK
     Dates: start: 20120201, end: 20120201
  2. PROCRIT [Suspect]
     Indication: ANAEMIA
     Dosage: 40000 IU, UNK

REACTIONS (1)
  - DRUG DISPENSING ERROR [None]
